FAERS Safety Report 5993465-5 (Version None)
Quarter: 2008Q4

REPORT INFORMATION
  Report Type: 
  Country: None (occurrence: None)
  Receive Date: 20081212
  Receipt Date: 20081204
  Transmission Date: 20090506
  Serious: Yes (Hospitalization)
  Sender: FDA-Public Use
  Company Number: US-ABBOTT-08P-163-0491283-00

PATIENT
  Sex: Female

DRUGS (9)
  1. HUMIRA [Suspect]
     Indication: PSORIASIS
     Route: 058
     Dates: start: 20080501, end: 20080701
  2. HUMIRA [Suspect]
     Route: 058
     Dates: start: 20080801, end: 20081030
  3. METOPROLOL TARTRATE [Concomitant]
     Indication: HYPERTENSION
     Route: 048
  4. SIMVASTATIN [Concomitant]
     Indication: BLOOD CHOLESTEROL INCREASED
     Route: 048
  5. GABAPENTIN [Concomitant]
     Indication: PAIN IN EXTREMITY
     Route: 048
  6. CYCLOBENZAPRINE HCL [Concomitant]
     Indication: DRUG USE FOR UNKNOWN INDICATION
     Route: 048
  7. CLONAZEPAM [Concomitant]
     Indication: ANXIETY
     Route: 048
  8. TRAZODONE HCL [Concomitant]
     Indication: ANXIETY
     Route: 048
  9. METRONIDAZOLE [Concomitant]
     Indication: CLOSTRIDIAL INFECTION
     Dates: start: 20080101

REACTIONS (6)
  - CLOSTRIDIAL INFECTION [None]
  - DIARRHOEA [None]
  - DIARRHOEA HAEMORRHAGIC [None]
  - HAEMATEMESIS [None]
  - PAIN IN EXTREMITY [None]
  - VOMITING [None]
